FAERS Safety Report 12798118 (Version 1)
Quarter: 2016Q3

REPORT INFORMATION
  Report Type: Spontaneous
  Country: US (occurrence: US)
  Receive Date: 20160929
  Receipt Date: 20160929
  Transmission Date: 20161109
  Serious: Yes (Life-Threatening, Hospitalization, Other)
  Sender: FDA-Public Use
  Company Number: None

PATIENT
  Age: 26 Year
  Sex: Female
  Weight: 74.84 kg

DRUGS (1)
  1. MIRENA [Suspect]
     Active Substance: LEVONORGESTREL

REACTIONS (6)
  - Abdominal pain lower [None]
  - Ectopic pregnancy [None]
  - Fallopian tube perforation [None]
  - Pregnancy with contraceptive device [None]
  - Immobile [None]
  - Intra-abdominal haemorrhage [None]

NARRATIVE: CASE EVENT DATE: 20160409
